FAERS Safety Report 13047640 (Version 2)
Quarter: 2017Q2

REPORT INFORMATION
  Report Type: Spontaneous
  Country: US (occurrence: US)
  Receive Date: 20161220
  Receipt Date: 20170413
  Transmission Date: 20170830
  Serious: No
  Sender: FDA-Public Use
  Company Number: US-CELGENEUS-USA-2016123764

PATIENT
  Age: 61 Year
  Sex: Female
  Weight: 67.19 kg

DRUGS (2)
  1. OTEZLA [Suspect]
     Active Substance: APREMILAST
     Indication: PSORIASIS
     Dosage: 60 MG
     Route: 048
     Dates: start: 20161005
  2. ASA [Concomitant]
     Active Substance: ASPIRIN
     Indication: HEADACHE
     Dosage: 1950 MG
     Route: 065
     Dates: end: 20161210

REACTIONS (1)
  - Headache [Recovering/Resolving]

NARRATIVE: CASE EVENT DATE: 201610
